FAERS Safety Report 5060358-X (Version None)
Quarter: 2006Q3

REPORT INFORMATION
  Report Type: 
  Country: None (occurrence: None)
  Receive Date: 20060720
  Receipt Date: 20060711
  Transmission Date: 20061208
  Serious: Yes (Hospitalization)
  Sender: FDA-Public Use
  Company Number: HQWYE301913MAR06

PATIENT
  Age: 60 Year
  Sex: Male

DRUGS (7)
  1. CYCLOSPORINE, CONTROL FOR SIROLIMUS (CYCLOSPORINE, CONTROL FOR SIROLIM [Suspect]
     Indication: PROPHYLAXIS AGAINST TRANSPLANT REJECTION
     Dosage: SEE IMAGE
     Route: 048
     Dates: start: 20060312, end: 20060101
  2. CYCLOSPORINE, CONTROL FOR SIROLIMUS (CYCLOSPORINE, CONTROL FOR SIROLIM [Suspect]
     Indication: PROPHYLAXIS AGAINST TRANSPLANT REJECTION
     Dosage: SEE IMAGE
     Route: 048
     Dates: start: 20051216, end: 20060311
  3. CYCLOSPORINE, CONTROL FOR SIROLIMUS (CYCLOSPORINE, CONTROL FOR SIROLIM [Suspect]
     Indication: PROPHYLAXIS AGAINST TRANSPLANT REJECTION
     Dosage: SEE IMAGE
     Route: 048
     Dates: start: 20060101, end: 20060614
  4. VALACYCLOVIR HCL [Suspect]
     Indication: ANTIVIRAL PROPHYLAXIS
     Dosage: 3 G 1X PER 1 DAY
     Route: 048
     Dates: start: 20051215, end: 20060306
  5. MYCOPHENOLATE MOFETIL [Concomitant]
  6. PREDNISOLONE [Concomitant]
  7. BACTRIM [Concomitant]

REACTIONS (8)
  - ENDOCARDITIS ENTEROCOCCAL [None]
  - HYPERDYNAMIC PRECORDIUM [None]
  - INTERVERTEBRAL DISCITIS [None]
  - MITRAL VALVE CALCIFICATION [None]
  - MITRAL VALVE INCOMPETENCE [None]
  - MYOCARDIAC ABSCESS [None]
  - NEUTROPENIA [None]
  - WHITE BLOOD CELL COUNT DECREASED [None]
